FAERS Safety Report 4540840-1 (Version None)
Quarter: 2004Q4

REPORT INFORMATION
  Report Type: 
  Country: None (occurrence: None)
  Receive Date: 20041228
  Receipt Date: 20041213
  Transmission Date: 20050328
  Serious: Yes (Other)
  Sender: FDA-Public Use
  Company Number: 2004115082

PATIENT
  Age: 73 Year
  Sex: Male
  Weight: 92 kg

DRUGS (19)
  1. LINEZOLID TABLET (LINEZOLID) [Suspect]
     Indication: STAPHYLOCOCCAL INFECTION
     Dosage: 1200 MG (600 MG, BID INTERVAL: EVERY DAY), ORAL
     Route: 048
     Dates: start: 20040903, end: 20041101
  2. DAKTACORT (HYDROCORTISONE, MICONAZOLE NITRATE) [Suspect]
     Dosage: TWICE DAILY
     Dates: start: 20041018
  3. NICORANDIL (NICORANDIL) [Suspect]
     Dosage: 10 MG (TWICE DAILY)
     Dates: start: 20041101
  4. FELDENE [Concomitant]
  5. CHLORHEXIDINE GLUCONATE [Concomitant]
  6. MUPIROCIN (MUPIROCIN) [Concomitant]
  7. ASPIRIN [Concomitant]
  8. CARBOMER (CARBOMER) [Concomitant]
  9. IRBESARTAN [Concomitant]
  10. NITROGLYCERIN [Concomitant]
  11. SIMVASTATIN [Concomitant]
  12. GLICLAZIDE (GLICLAZIDE) [Concomitant]
  13. NIFEDIPINE [Concomitant]
  14. ROSIGLITAZONE (ROSIGLITAZONE) [Concomitant]
  15. OXYTETRACYCLINE [Concomitant]
  16. FUROSEMIDE [Concomitant]
  17. TADALAFIL (TADALAFIL) [Concomitant]
  18. FUSIDIC ACID [Concomitant]
  19. ISOSORBIDE MONONITRATE [Concomitant]

REACTIONS (4)
  - GAMMA-GLUTAMYLTRANSFERASE INCREASED [None]
  - HAEMOGLOBIN DECREASED [None]
  - MALAISE [None]
  - PLATELET COUNT DECREASED [None]
